FAERS Safety Report 16645302 (Version 5)
Quarter: 2019Q3

REPORT INFORMATION
  Report Type: Spontaneous
  Country: US (occurrence: US)
  Receive Date: 20190729
  Receipt Date: 20190911
  Transmission Date: 20191004
  Serious: Yes (Death)
  Sender: FDA-Public Use
  Company Number: US-ACTELION-A-US2019-193591

PATIENT
  Sex: Female
  Weight: 49.89 kg

DRUGS (3)
  1. OPSUMIT [Suspect]
     Active Substance: MACITENTAN
     Indication: PULMONARY ARTERIAL HYPERTENSION
     Dosage: 10 MG, QD
     Route: 048
  2. REMODULIN [Suspect]
     Active Substance: TREPROSTINIL
     Indication: PRODUCT USED FOR UNKNOWN INDICATION
     Route: 065
  3. TADALAFIL. [Concomitant]
     Active Substance: TADALAFIL

REACTIONS (10)
  - Diarrhoea [Unknown]
  - Hypotension [Unknown]
  - Sepsis [Fatal]
  - Decreased appetite [Unknown]
  - Feeling abnormal [Unknown]
  - Pneumonia [Fatal]
  - Headache [Unknown]
  - Device dislocation [Unknown]
  - Nausea [Unknown]
  - Weight decreased [Unknown]
